FAERS Safety Report 23619445 (Version 2)
Quarter: 2024Q1

REPORT INFORMATION
  Report Type: Report from Study
  Country: CA (occurrence: CA)
  Receive Date: 20240311
  Receipt Date: 20240315
  Transmission Date: 20240410
  Serious: Yes (Hospitalization, Other)
  Sender: FDA-Public Use
  Company Number: CA-GLAXOSMITHKLINE-CA2024029024

PATIENT

DRUGS (1)
  1. MEPOLIZUMAB [Suspect]
     Active Substance: MEPOLIZUMAB
     Indication: Asthma
     Dosage: 100 MG, Q4W
     Route: 058
     Dates: start: 20240205

REACTIONS (10)
  - Pneumonia [Not Recovered/Not Resolved]
  - Dyspnoea [Unknown]
  - Wheezing [Unknown]
  - Fall [Unknown]
  - Pyrexia [Unknown]
  - Feeling abnormal [Unknown]
  - Feeling cold [Unknown]
  - Hypotension [Unknown]
  - Oxygen saturation decreased [Unknown]
  - Malaise [Unknown]

NARRATIVE: CASE EVENT DATE: 20240201
